FAERS Safety Report 21283183 (Version 1)
Quarter: 2022Q3

REPORT INFORMATION
  Report Type: Spontaneous
  Country: CA (occurrence: CA)
  Receive Date: 20220901
  Receipt Date: 20220901
  Transmission Date: 20221027
  Serious: Yes (Other)
  Sender: FDA-Public Use
  Company Number: None

PATIENT

DRUGS (7)
  1. BUSULFAN [Suspect]
     Active Substance: BUSULFAN
     Indication: Immunosuppression
  2. FLUDARABINE [Suspect]
     Active Substance: FLUDARABINE PHOSPHATE
     Indication: Immunosuppression
     Dosage: 1 EVERY 1 DAYS
  3. ALEMTUZUMAB [Suspect]
     Active Substance: ALEMTUZUMAB
     Indication: Immunosuppression
     Dosage: SOLUTION INTRAVENOUS
  4. THYMOCYTE IMMUNE GLOBULIN NOS [Suspect]
     Active Substance: THYMOCYTE IMMUNE GLOBULIN NOS
     Indication: Immunosuppression
     Dosage: 1 EVERY 1 DAYS
  5. RITUXIMAB [Suspect]
     Active Substance: RITUXIMAB
     Indication: Immunosuppression
  6. THIOTEPA [Suspect]
     Active Substance: THIOTEPA
     Indication: Immunosuppression
  7. TREOSULFAN [Suspect]
     Active Substance: TREOSULFAN
     Indication: Immunosuppression
     Dosage: 1 EVERY 1 DAYS

REACTIONS (6)
  - Bronchopulmonary aspergillosis [Unknown]
  - Enterococcal bacteraemia [Unknown]
  - Escherichia infection [Unknown]
  - Human herpesvirus 6 infection [Unknown]
  - Klebsiella bacteraemia [Unknown]
  - Viral diarrhoea [Unknown]
